FAERS Safety Report 4668138-1 (Version None)
Quarter: 2005Q2

REPORT INFORMATION
  Report Type: 
  Country: None (occurrence: None)
  Receive Date: 20050521
  Receipt Date: 20041215
  Transmission Date: 20051028
  Serious: Yes (Other)
  Sender: FDA-Public Use
  Company Number: PHEH2004US13402

PATIENT
  Age: 54 Year
  Sex: Female

DRUGS (18)
  1. ZOMETA [Suspect]
     Indication: MULTIPLE MYELOMA
     Dosage: 4 MG, QMO
     Dates: start: 20031001, end: 20041101
  2. CELEXA [Concomitant]
     Indication: DEPRESSION
     Dosage: 40 MG, QD
     Dates: start: 20020901
  3. NORVASC [Concomitant]
     Indication: HYPERTENSION
     Dosage: 10 MG, QD
     Dates: start: 20020901
  4. DIOVANE [Concomitant]
     Indication: HYPERTENSION
     Dosage: 20/125 ONCE DAILY
     Dates: start: 20020901
  5. MOTRIN [Concomitant]
     Indication: DISCOMFORT
     Dates: start: 20020901
  6. VITAMIN B-12 [Concomitant]
     Indication: VITAMIN SUPPLEMENTATION
     Dosage: 100 MG, QD
     Dates: start: 20020901
  7. CALCIUM GLUCONATE [Concomitant]
     Dosage: 1200 MG, QD
     Dates: start: 20020901
  8. POTASSIUM CHLORIDE [Concomitant]
     Indication: HYPOKALAEMIA
     Dosage: 20 MEQ, BID
     Dates: start: 20020901
  9. WELLBUTRIN [Concomitant]
     Indication: DEPRESSION
     Dosage: 150 MG, QD
     Dates: start: 20030401
  10. VITAMIN E [Concomitant]
     Indication: VITAMIN SUPPLEMENTATION
     Dosage: 1 TABLET  QD
     Dates: start: 20031001
  11. MIRALAX [Concomitant]
     Indication: CONSTIPATION
     Dosage: ONE PACKAGE PRN
     Dates: start: 20031101
  12. MESALAMINE [Concomitant]
     Dates: start: 20031101
  13. OXYCODONE HCL [Concomitant]
     Indication: PAIN
     Dosage: 5 MG, PRN
     Dates: start: 20031101
  14. PREVACID [Concomitant]
     Dosage: 30 MG, QD
     Dates: start: 20041201
  15. DEXAMETHASONE [Concomitant]
     Dosage: 40 MG X 4 DAYS, D 1 + D15
     Dates: start: 20041001
  16. DEXAMETHASONE [Concomitant]
     Dosage: 40 MG X 4 DAYS, D1, D9 + D17
     Dates: end: 20040901
  17. THALIDOMIDE [Concomitant]
     Indication: MULTIPLE MYELOMA
     Dosage: 150 MG, QHS
     Dates: end: 20040101
  18. THALIDOMIDE [Concomitant]
     Dosage: 200 MG, QHS
     Dates: start: 20040301, end: 20040901

REACTIONS (6)
  - BONE DEBRIDEMENT [None]
  - BONE INFECTION [None]
  - LOCAL SWELLING [None]
  - OSTEONECROSIS [None]
  - PAIN IN JAW [None]
  - SEQUESTRECTOMY [None]
